FAERS Safety Report 7138219-1 (Version None)
Quarter: 2010Q4

REPORT INFORMATION
  Report Type: 
  Country: None (occurrence: None)
  Receive Date: 20101206
  Receipt Date: 20101126
  Transmission Date: 20110411
  Serious: Yes (Hospitalization)
  Sender: FDA-Public Use
  Company Number: ES-ROCHE-740221

PATIENT
  Sex: Male
  Weight: 84 kg

DRUGS (6)
  1. CAPECITABINE [Suspect]
     Indication: COLORECTAL CANCER
     Dosage: TEMPORARILY INTERRUPTED, FREQUENCY: 12 HR X 14 DAYS, DATE OF LAST DOSE PRIOR TO SAE: 28 OCT 2010
     Route: 048
     Dates: start: 20100723, end: 20101106
  2. BEVACIZUMAB [Suspect]
     Indication: COLORECTAL CANCER
     Dosage: DOSAGE FORM: VIAL. TEMPORARILY INTERRUPTED, DATE OF LAST DOSE PRIOR TO SAE: 14 OCT 2010
     Route: 042
     Dates: start: 20100723, end: 20101106
  3. IRINOTECAN HCL [Suspect]
     Indication: COLORECTAL CANCER
     Dosage: DOSAGE NOT REPORTED
     Route: 042
  4. IRINOTECAN HCL [Suspect]
     Dosage: TEMPORARILY INTERRUPTED, DATE OF LAST DOSE PRIOR TO SAE: 14 OCT 2010
     Route: 042
     Dates: start: 20100723, end: 20101106
  5. CARDURA [Concomitant]
     Dates: start: 20030101
  6. OMEPRAZOLE [Concomitant]
     Dates: start: 20101106

REACTIONS (2)
  - INTESTINAL OBSTRUCTION [None]
  - THROMBOCYTOPENIA [None]
